FAERS Safety Report 7984004-8 (Version None)
Quarter: 2011Q4

REPORT INFORMATION
  Report Type: 
  Country: None (occurrence: None)
  Receive Date: 20111216
  Receipt Date: 20111208
  Transmission Date: 20120403
  Serious: Yes (Hospitalization)
  Sender: FDA-Public Use
  Company Number: FR-PFIZER INC-2011261945

PATIENT
  Age: 58 Year
  Sex: Male

DRUGS (8)
  1. ATORVASTATIN CALCIUM [Suspect]
     Dosage: 10 MG, 1X/DAY
  2. DILTIAZEM HYDROCHLORIDE [Concomitant]
     Dosage: 300 MG, 1X/DAY
  3. ASPIRIN [Concomitant]
  4. TERCIAN [Concomitant]
     Dosage: 0.5 DF, 3X/DAY (0.5 DF IN THE MORNING AND 2 DF IN THE EVENING)
  5. METFORMIN [Concomitant]
     Dosage: 1 G, 2X/DAY
     Dates: end: 20100819
  6. EFFEXOR [Concomitant]
     Dosage: 75 MG, 1X/DAY
  7. LEXOMIL [Concomitant]
     Dosage: 0.25 DF, 2X/DAY
  8. EFFEXOR [Concomitant]
     Dosage: 37.5 MG, 1X/DAY

REACTIONS (2)
  - ANXIETY [None]
  - PANCREATITIS ACUTE [None]
